FAERS Safety Report 17839242 (Version 1)
Quarter: 2020Q2

REPORT INFORMATION
  Report Type: Spontaneous
  Country: US (occurrence: US)
  Receive Date: 20200529
  Receipt Date: 20200529
  Transmission Date: 20200714
  Serious: No
  Sender: FDA-Public Use
  Company Number: US-IPCA LABORATORIES LIMITED-IPC-2020-US-000376

PATIENT

DRUGS (8)
  1. ZYDUS ATENOLOL [Suspect]
     Active Substance: ATENOLOL
     Dosage: 1 DOSAGE FORM, QD
     Route: 048
     Dates: start: 20190710, end: 20190718
  2. PREDNISONE. [Concomitant]
     Active Substance: PREDNISONE
     Indication: RASH
     Dosage: UNK
     Route: 065
     Dates: start: 20190718
  3. CARVEDILOL. [Concomitant]
     Active Substance: CARVEDILOL
     Indication: TACHYCARDIA
     Dosage: 1 DOSAGE FORM, QD
     Route: 048
     Dates: start: 20190703, end: 20190710
  4. PROPRANOLOL [Suspect]
     Active Substance: PROPRANOLOL HYDROCHLORIDE
     Indication: TACHYCARDIA
     Dosage: UNK
     Route: 065
     Dates: start: 20190622, end: 20190622
  5. ZITHROMAX [Concomitant]
     Active Substance: AZITHROMYCIN DIHYDRATE
     Indication: RASH
     Dosage: UNK
     Route: 065
     Dates: start: 20190718
  6. ZYDUS ATENOLOL [Suspect]
     Active Substance: ATENOLOL
     Indication: TACHYCARDIA
     Dosage: 1 DOSAGE FORM, QD
     Route: 048
     Dates: start: 20190624, end: 201907
  7. ZYDUS ATENOLOL [Suspect]
     Active Substance: ATENOLOL
     Indication: TACHYCARDIA
     Dosage: 2 DOSAGE FORM, QD
     Route: 048
     Dates: start: 20190619, end: 20200620
  8. PROPRANOLOL [Suspect]
     Active Substance: PROPRANOLOL HYDROCHLORIDE
     Dosage: UNK
     Route: 065
     Dates: start: 20190719

REACTIONS (1)
  - Dizziness [Recovered/Resolved]

NARRATIVE: CASE EVENT DATE: 20190622
